FAERS Safety Report 9182706 (Version 1)
Quarter: 2013Q1

REPORT INFORMATION
  Report Type: Spontaneous
  Country: DE (occurrence: DE)
  Receive Date: 20130322
  Receipt Date: 20130322
  Transmission Date: 20140127
  Serious: Yes (Hospitalization)
  Sender: FDA-Public Use
  Company Number: DE-ROCHE-1205008

PATIENT
  Sex: Female

DRUGS (1)
  1. PERJETA [Suspect]
     Indication: BREAST CANCER METASTATIC
     Route: 065

REACTIONS (2)
  - Dizziness [Unknown]
  - Blood pressure increased [Unknown]
